FAERS Safety Report 9652001 (Version 1)
Quarter: 2013Q4

REPORT INFORMATION
  Report Type: Spontaneous
  Country: US (occurrence: None)
  Receive Date: 20131028
  Receipt Date: 20131028
  Transmission Date: 20140711
  Serious: Yes (Hospitalization)
  Sender: FDA-Public Use
  Company Number: None

PATIENT
  Age: 57 Year
  Sex: Male
  Weight: 123.38 kg

DRUGS (10)
  1. PRADAXA [Suspect]
     Route: 048
  2. FUROSEMIDE [Concomitant]
  3. LISINOPRIL [Concomitant]
  4. DILTIAZEM [Concomitant]
  5. ATORVASTATIN [Concomitant]
  6. METOPROLOL [Concomitant]
  7. PANTOPRAZOLE [Concomitant]
  8. ALLEGRA [Concomitant]
  9. COMBIVENT INHALER [Concomitant]
  10. PRADAXA [Concomitant]

REACTIONS (3)
  - Dyspnoea exertional [None]
  - Fatigue [None]
  - Melaena [None]
